FAERS Safety Report 12298296 (Version 14)
Quarter: 2016Q3

REPORT INFORMATION
  Report Type: Spontaneous
  Country: IT (occurrence: IT)
  Receive Date: 20160423
  Receipt Date: 20160801
  Transmission Date: 20161109
  Serious: Yes (Other)
  Sender: FDA-Public Use
  Company Number: IT-ACCORD-039871

PATIENT
  Age: 73 Year
  Sex: Male
  Weight: 70 kg

DRUGS (4)
  1. AVASTIN [Suspect]
     Active Substance: BEVACIZUMAB
     Indication: RECTAL ADENOCARCINOMA
     Route: 042
     Dates: start: 20150512
  2. INSULIN [Concomitant]
     Active Substance: INSULIN NOS
  3. FLUOROURACIL. [Suspect]
     Active Substance: FLUOROURACIL
     Indication: RECTAL ADENOCARCINOMA
     Dosage: ALSO RECEIVED IV BOLUS AT THE DOSE OF 530 MG CYCLICAL FROM 12-MAY-2015 TO 29-MAR-2016.
     Route: 042
     Dates: start: 20150512
  4. FOLINIC ACID [Concomitant]
     Active Substance: LEUCOVORIN
     Indication: RECTAL ADENOCARCINOMA
     Route: 042
     Dates: start: 20150512, end: 20160412

REACTIONS (14)
  - Stomatitis [Recovering/Resolving]
  - Hyperkeratosis [Not Recovered/Not Resolved]
  - Back pain [Recovering/Resolving]
  - Dysphonia [Not Recovered/Not Resolved]
  - Hypertension [Recovering/Resolving]
  - Dysuria [Not Recovered/Not Resolved]
  - Haematuria [Recovering/Resolving]
  - Thrombocytopenia [Recovering/Resolving]
  - Dry mouth [Not Recovered/Not Resolved]
  - Palmar erythema [Not Recovered/Not Resolved]
  - Onychoclasis [Not Recovered/Not Resolved]
  - Pharyngitis [Not Recovered/Not Resolved]
  - Paraesthesia [Not Recovered/Not Resolved]
  - Hypercreatininaemia [Unknown]

NARRATIVE: CASE EVENT DATE: 20150627
